FAERS Safety Report 19587481 (Version 1)
Quarter: 2021Q3

REPORT INFORMATION
  Report Type: Spontaneous
  Country: US (occurrence: US)
  Receive Date: 20210720
  Receipt Date: 20210720
  Transmission Date: 20211014
  Serious: Yes (Other)
  Sender: FDA-Public Use
  Company Number: None

PATIENT
  Age: 61 Year
  Sex: Female
  Weight: 65.25 kg

DRUGS (2)
  1. INJECTAFER [Suspect]
     Active Substance: FERRIC CARBOXYMALTOSE
     Indication: IRON DEFICIENCY
     Dosage: ?          QUANTITY:750 INFUSION;?
     Dates: start: 20210624
  2. NP THYROID [Suspect]
     Active Substance: LEVOTHYROXINE\LIOTHYRONINE

REACTIONS (12)
  - Arthralgia [None]
  - Headache [None]
  - Iron overload [None]
  - Recalled product administered [None]
  - Wheezing [None]
  - Pyrexia [None]
  - Dizziness [None]
  - Fatigue [None]
  - Iron deficiency [None]
  - Vomiting [None]
  - Pain [None]
  - Hypothyroidism [None]

NARRATIVE: CASE EVENT DATE: 20210624
